FAERS Safety Report 9381838 (Version 1)
Quarter: 2013Q3

REPORT INFORMATION
  Report Type: Spontaneous
  Country: FR (occurrence: FR)
  Receive Date: 20130703
  Receipt Date: 20130703
  Transmission Date: 20140515
  Serious: Yes (Other)
  Sender: FDA-Public Use
  Company Number: PHHY2013FR067448

PATIENT
  Age: 57 Year
  Sex: Male

DRUGS (15)
  1. ZOMETA [Suspect]
     Dosage: 4 MG, QMO
     Route: 042
     Dates: start: 20120831, end: 20130122
  2. DEXAMETHASONE [Concomitant]
     Dosage: 40 MG, QD
     Dates: start: 201209
  3. DEXAMETHASONE [Concomitant]
     Dosage: 40 MG, QD
     Dates: start: 201210
  4. DEXAMETHASONE [Concomitant]
     Dosage: 40 MG, QD
     Dates: start: 20121121
  5. DEXAMETHASONE [Concomitant]
     Dosage: 40 MG, QD
     Dates: start: 20121210
  6. DEXAMETHASONE [Concomitant]
     Dosage: 40 MG, QD
     Dates: start: 201301
  7. REVLIMID [Concomitant]
     Dosage: 25 MG, QD
  8. VELCADE [Concomitant]
     Dosage: 1.3 MG/M2, FROM THE 6 TH CYCLE
  9. CLAIRYG [Concomitant]
     Indication: HYPOGAMMAGLOBULINAEMIA
     Dosage: 25 MG,1 INFUSION ON QM
     Route: 042
     Dates: start: 20130219
  10. PENTACARINAT [Concomitant]
     Indication: PANCYTOPENIA
     Dosage: UNK UKN, QMO
     Dates: start: 20130219
  11. DAFALGAN [Concomitant]
     Dosage: UNK UKN, UNK
  12. ARANESP [Concomitant]
     Dosage: UNK UKN, PRN
  13. ARIXTRA [Concomitant]
     Indication: PHLEBITIS
     Dosage: UNK UKN, UNK
  14. VALACICLOVIR [Concomitant]
     Dosage: UNK UKN, UNK
  15. AMYCOR [Concomitant]
     Dosage: UNK
     Route: 062

REACTIONS (4)
  - Osteonecrosis of jaw [Recovering/Resolving]
  - Pain in jaw [Unknown]
  - Dental caries [Recovered/Resolved]
  - Exposed bone in jaw [Unknown]
